FAERS Safety Report 19148817 (Version 1)
Quarter: 2021Q2

REPORT INFORMATION
  Report Type: Spontaneous
  Country: CN (occurrence: CN)
  Receive Date: 20210416
  Receipt Date: 20210416
  Transmission Date: 20210717
  Serious: Yes (Other)
  Sender: FDA-Public Use
  Company Number: CN-ROCHE-2808513

PATIENT
  Age: 64 Year
  Sex: Male
  Weight: 52 kg

DRUGS (6)
  1. DOXORUBICIN [Concomitant]
     Active Substance: DOXORUBICIN
     Indication: OVARIAN CANCER
     Dosage: 3/?OCT/2020, 28/NOV/2020, 18/JAN/2021,21/FEB/2021
  2. AVASTIN [Suspect]
     Active Substance: BEVACIZUMAB
     Indication: OVARIAN CANCER
     Dosage: 30/OCT/2020, 28/NOV/2020, 18/JAN/2021,21/FEB/2021
     Route: 065
  3. CARBOPLATIN. [Concomitant]
     Active Substance: CARBOPLATIN
     Indication: OVARIAN CANCER
  4. OLAPARIB. [Concomitant]
     Active Substance: OLAPARIB
     Dosage: DF=TABLET
     Dates: start: 202003, end: 202010
  5. OLAPARIB. [Concomitant]
     Active Substance: OLAPARIB
     Indication: OVARIAN CANCER
     Dosage: DF=TABLET
     Route: 048
     Dates: start: 201907, end: 201908
  6. OLAPARIB. [Concomitant]
     Active Substance: OLAPARIB
     Dosage: DF=TABLET
     Dates: start: 201908, end: 202003

REACTIONS (3)
  - Myelosuppression [Unknown]
  - Off label use [Unknown]
  - Platelet count decreased [Unknown]
